FAERS Safety Report 14744376 (Version 1)
Quarter: 2018Q2

REPORT INFORMATION
  Report Type: Spontaneous
  Country: US (occurrence: US)
  Receive Date: 20180405
  Receipt Date: 20180405
  Transmission Date: 20180711
  Serious: No
  Sender: FDA-Public Use
  Company Number: None

PATIENT
  Age: 57 Year
  Sex: Male
  Weight: 105.23 kg

DRUGS (1)
  1. HUMIRA [Suspect]
     Active Substance: ADALIMUMAB
     Indication: PSORIASIS
     Dosage: 40/0.8ML INJECT40MG ONCE EVERY 2 SUBCUTANEOUSLY
     Route: 058
     Dates: start: 20170915

REACTIONS (3)
  - Pneumonia [None]
  - Gait inability [None]
  - Arthralgia [None]

NARRATIVE: CASE EVENT DATE: 20180226
